FAERS Safety Report 25963892 (Version 1)
Quarter: 2025Q4

REPORT INFORMATION
  Report Type: Spontaneous
  Country: US (occurrence: US)
  Receive Date: 20251027
  Receipt Date: 20251027
  Transmission Date: 20260117
  Serious: Yes (Other)
  Sender: BAYER HEALTHCARE PHARMACEUTICALS INC.
  Company Number: US-BAYER-2025A139446

PATIENT
  Age: 73 Year
  Sex: Male

DRUGS (2)
  1. NUBEQA [Suspect]
     Active Substance: DAROLUTAMIDE
     Indication: Hormone-dependent prostate cancer
     Dosage: UNK
     Dates: start: 20250101
  2. ORGOVYX [Concomitant]
     Active Substance: RELUGOLIX

REACTIONS (2)
  - Colitis ischaemic [None]
  - Colitis ischaemic [None]

NARRATIVE: CASE EVENT DATE: 20250601
